FAERS Safety Report 12396670 (Version 1)
Quarter: 2016Q2

REPORT INFORMATION
  Report Type: Spontaneous
  Country: None (occurrence: None)
  Receive Date: 20160523
  Receipt Date: 20160523
  Transmission Date: 20160815
  Serious: No
  Sender: FDA-Public Use
  Company Number: None

PATIENT
  Age: 56 Year
  Sex: Female
  Weight: 58.51 kg

DRUGS (12)
  1. HYDROCODONE [Concomitant]
     Active Substance: HYDROCODONE
  2. ALPRAZOLAM. [Concomitant]
     Active Substance: ALPRAZOLAM
  3. C [Concomitant]
  4. COLLOIDAL SILVER [Concomitant]
     Active Substance: SILVER
  5. LEVOTHYROXIN [Concomitant]
     Active Substance: LEVOTHYROXINE
  6. D [Concomitant]
  7. CHORELLA [Concomitant]
  8. HYDROCODONE-ACETAMINOFEN, 500 MG [Suspect]
     Active Substance: ACETAMINOPHEN\HYDROCODONE
     Indication: BACK PAIN
     Route: 048
     Dates: start: 20091111
  9. HYDROCODONE-ACETAMINOFEN, 500 MG [Suspect]
     Active Substance: ACETAMINOPHEN\HYDROCODONE
     Indication: INTERVERTEBRAL DISC PROTRUSION
     Route: 048
     Dates: start: 20091111
  10. HYDROCODONE-ACETAMINOFEN, 500 MG [Suspect]
     Active Substance: ACETAMINOPHEN\HYDROCODONE
     Indication: MUSCULOSKELETAL PAIN
     Route: 048
     Dates: start: 20091111
  11. HYDROCODONE-ACETAMINOFEN, 500 MG [Suspect]
     Active Substance: ACETAMINOPHEN\HYDROCODONE
     Indication: NECK PAIN
     Route: 048
     Dates: start: 20091111
  12. ANDROGRAPHIS [Concomitant]

REACTIONS (5)
  - Eyelid oedema [None]
  - Diplopia [None]
  - Facial paralysis [None]
  - Vision blurred [None]
  - Miosis [None]
